FAERS Safety Report 15387316 (Version 1)
Quarter: 2018Q3

REPORT INFORMATION
  Report Type: Other
  Country: CA (occurrence: CA)
  Receive Date: 20180914
  Receipt Date: 20180914
  Transmission Date: 20181010
  Serious: Yes (Death, Other)
  Sender: FDA-Public Use
  Company Number: CA-PFIZER INC-2018372413

PATIENT
  Age: 3 Year
  Sex: Female

DRUGS (10)
  1. TACROLIMUS. [Suspect]
     Active Substance: TACROLIMUS
     Dosage: UNK
     Route: 065
  2. TACROLIMUS. [Suspect]
     Active Substance: TACROLIMUS
     Indication: HISTIOCYTOSIS HAEMATOPHAGIC
     Dosage: UNK
     Route: 065
  3. ETOPOSIDE. [Suspect]
     Active Substance: ETOPOSIDE
     Indication: HISTIOCYTOSIS HAEMATOPHAGIC
     Dosage: UNK
     Route: 065
  4. DEXAMETHASONE. [Suspect]
     Active Substance: DEXAMETHASONE
     Dosage: UNK
     Route: 065
  5. METHYLPREDNISOLONE. [Suspect]
     Active Substance: METHYLPREDNISOLONE
     Indication: HISTIOCYTOSIS HAEMATOPHAGIC
     Dosage: 10 MG/KG, 1X/DAY
     Route: 065
  6. DEXAMETHASONE. [Suspect]
     Active Substance: DEXAMETHASONE
     Indication: HISTIOCYTOSIS HAEMATOPHAGIC
     Dosage: 10 MG/M2, UNK
     Route: 065
  7. DEXAMETHASONE. [Suspect]
     Active Substance: DEXAMETHASONE
     Indication: DISEASE RECURRENCE
     Dosage: 10 MG/M2, UNK
     Route: 065
  8. DEXAMETHASONE. [Suspect]
     Active Substance: DEXAMETHASONE
     Dosage: UNK
     Route: 065
  9. METHYLPREDNISOLONE. [Suspect]
     Active Substance: METHYLPREDNISOLONE
     Dosage: 0.1 MG/KG, 1X/DAY
     Route: 065
  10. THYMOGLOBULIN [Suspect]
     Active Substance: LAPINE T-LYMPHOCYTE IMMUNE GLOBULIN
     Indication: HISTIOCYTOSIS HAEMATOPHAGIC
     Dosage: UNK
     Route: 042

REACTIONS (9)
  - Bacteraemia [Fatal]
  - Condition aggravated [Fatal]
  - Serum ferritin increased [Fatal]
  - Drug ineffective [Fatal]
  - Multiple organ dysfunction syndrome [Fatal]
  - Sepsis [Fatal]
  - Product use in unapproved indication [Unknown]
  - Histiocytosis haematophagic [Fatal]
  - Hepatic enzyme increased [Fatal]
